FAERS Safety Report 24993730 (Version 2)
Quarter: 2025Q1

REPORT INFORMATION
  Report Type: Spontaneous
  Country: US (occurrence: US)
  Receive Date: 20250221
  Receipt Date: 20250321
  Transmission Date: 20250408
  Serious: No
  Sender: LEO PHARM
  Company Number: US-LEO Pharma-377814

PATIENT
  Age: 79 Year
  Sex: Male

DRUGS (1)
  1. ADBRY [Suspect]
     Active Substance: TRALOKINUMAB-LDRM
     Indication: Dermatitis atopic
     Route: 058
     Dates: start: 20241122

REACTIONS (7)
  - Arthralgia [Unknown]
  - Hypoaesthesia [Unknown]
  - Sinus disorder [Unknown]
  - Paraesthesia [Unknown]
  - Productive cough [Unknown]
  - Myalgia [Unknown]
  - Ocular discomfort [Unknown]
